FAERS Safety Report 7827568-7 (Version None)
Quarter: 2011Q4

REPORT INFORMATION
  Report Type: 
  Country: None (occurrence: None)
  Receive Date: 20111019
  Receipt Date: 20111019
  Transmission Date: 20120403
  Serious: Yes (Hospitalization)
  Sender: FDA-Public Use
  Company Number: None

PATIENT
  Sex: Female
  Weight: 135.2 kg

DRUGS (3)
  1. CARBOPLATIN [Suspect]
     Dosage: 900 MG
     Dates: end: 20111005
  2. HERCEPTIN [Suspect]
     Dosage: 188 MG
     Dates: end: 20111012
  3. TAXOTERE [Suspect]
     Dosage: 188 MG
     Dates: end: 20111005

REACTIONS (10)
  - DIZZINESS [None]
  - HYPERHIDROSIS [None]
  - ASTHENIA [None]
  - LOSS OF CONSCIOUSNESS [None]
  - FATIGUE [None]
  - BURNING SENSATION [None]
  - NAUSEA [None]
  - AURA [None]
  - DEHYDRATION [None]
  - SYNCOPE [None]
